FAERS Safety Report 7786594-7 (Version None)
Quarter: 2011Q3

REPORT INFORMATION
  Report Type: 
  Country: None (occurrence: None)
  Receive Date: 20110929
  Receipt Date: 20110920
  Transmission Date: 20111222
  Serious: No
  Sender: FDA-Public Use
  Company Number: CA-ELI_LILLY_AND_COMPANY-CA201109005420

PATIENT
  Sex: Female

DRUGS (4)
  1. ZOPICLONE [Concomitant]
  2. ZYPREXA [Suspect]
     Indication: SCHIZOPHRENIA
  3. RISPERIDONE [Concomitant]
  4. LITHIUM [Concomitant]

REACTIONS (4)
  - GLUCOSE TOLERANCE IMPAIRED [None]
  - WHITE BLOOD CELL COUNT INCREASED [None]
  - ASTHENIA [None]
  - HAEMOGLOBIN DECREASED [None]
